FAERS Safety Report 13501749 (Version 1)
Quarter: 2017Q2

REPORT INFORMATION
  Report Type: Spontaneous
  Country: US (occurrence: US)
  Receive Date: 20170502
  Receipt Date: 20170502
  Transmission Date: 20170830
  Serious: Yes (Hospitalization)
  Sender: FDA-Public Use
  Company Number: US-AUROBINDO-AUR-APL-2017-33195

PATIENT
  Age: 56 Year
  Sex: Male

DRUGS (9)
  1. HYDROMORPHONE [Suspect]
     Active Substance: HYDROMORPHONE
     Indication: ANALGESIC THERAPY
     Dosage: 30 MG, FIRST 24 HOURS POST OPERATIVE DAY 1
     Route: 042
  2. FENTANYL. [Suspect]
     Active Substance: FENTANYL
     Indication: ANALGESIC THERAPY
     Dosage: 500 ?G, POST OPERATIVE DAY 1
     Route: 042
  3. FENTANYL. [Suspect]
     Active Substance: FENTANYL
     Dosage: 12 ?G, (TOTAL 24 HOUR DOSE=288 MCG)POST OPERATIVE DAY 1
     Route: 065
  4. FENTANYL. [Suspect]
     Active Substance: FENTANYL
     Dosage: 12 ?G, POST OPERATIVE DAY 5(12 MCG /HOUR/72 HOURS)
     Route: 065
  5. HYDROMORPHONE [Suspect]
     Active Substance: HYDROMORPHONE
     Dosage: 12 MG, FIRST 24 HOURS POST OPERATION; POST OPERATIVE DAY 1
     Route: 048
  6. KADIAN [Suspect]
     Active Substance: MORPHINE SULFATE
     Indication: ANALGESIC THERAPY
     Dosage: 60 MG, UNK
     Route: 065
  7. FENTANYL. [Suspect]
     Active Substance: FENTANYL
     Dosage: 75 ?G, 75 MCG/72 HOURS  ON DAY 20
     Route: 065
  8. KADIAN [Suspect]
     Active Substance: MORPHINE SULFATE
     Dosage: 30 MG, FIRST 24 HOURS ON POST OPERATIVE DAY 1
  9. HYDROCODONE BITARTRATE AND ACETAMINOPHEN [Concomitant]
     Active Substance: ACETAMINOPHEN\HYDROCODONE BITARTRATE
     Indication: PRODUCT USED FOR UNKNOWN INDICATION
     Dosage: UNK, 6-7/DAY
     Route: 048

REACTIONS (1)
  - Hyperaesthesia [Recovered/Resolved]
